FAERS Safety Report 25242076 (Version 1)
Quarter: 2025Q2

REPORT INFORMATION
  Report Type: Spontaneous
  Country: NO (occurrence: NO)
  Receive Date: 20250426
  Receipt Date: 20250426
  Transmission Date: 20250716
  Serious: Yes (Other)
  Sender: ACCORD
  Company Number: None

PATIENT
  Age: 83 Year
  Sex: Male

DRUGS (10)
  1. ATORVASTATIN [Suspect]
     Active Substance: ATORVASTATIN
     Indication: Cerebrovascular accident prophylaxis
     Dosage: STRENGTH: 80 MG
     Dates: start: 20241203, end: 20250110
  2. ASPIRIN\MAGNESIUM OXIDE [Concomitant]
     Active Substance: ASPIRIN\MAGNESIUM OXIDE
     Dates: start: 20241204
  3. Behepan [Concomitant]
     Indication: Vitamin B complex deficiency
     Dosage: STRENGTH: 1 MG, PAUSED FROM 10-JAN-25 TO 10-MAR-2025 ?CONTINUED USE OF MEDICINAL PRODUCT
     Dates: start: 20241203, end: 20250103
  4. DOXAZOSIN MESYLATE [Concomitant]
     Active Substance: DOXAZOSIN MESYLATE
     Indication: Hypertension
     Dosage: STRENGTH: 8 MG, CONTINUED USE OF MEDICINAL PRODUCT
  5. HYDROCHLOROTHIAZIDE\LOSARTAN POTASSIUM [Concomitant]
     Active Substance: HYDROCHLOROTHIAZIDE\LOSARTAN POTASSIUM
     Indication: Hypertension
     Dosage: STRENGTH: HYDROCHLOROTHIAZIDE 12.5 MG AND LOSARTAN 100 MG
     Dates: start: 20211209, end: 20250310
  6. PRADAXA [Concomitant]
     Active Substance: DABIGATRAN ETEXILATE MESYLATE
     Indication: Anticoagulant therapy
     Dosage: STRENGTH: 150 MG, CONTINUED USE OF MEDICINAL PRODUCT
  7. METOPROLOL TARTRATE [Concomitant]
     Active Substance: METOPROLOL TARTRATE
     Indication: Atrial fibrillation
     Dosage: STRENGTH: 100 MG, CONTINUED USE OF MEDICINAL PRODUCT
  8. XALCOM [Concomitant]
     Active Substance: LATANOPROST\TIMOLOL
     Indication: Glaucoma
  9. Behepan [Concomitant]
     Indication: Vitamin B complex deficiency
     Dosage: STRENGTH: 1 MG, PAUSED FROM 10-JAN-25 TO 10-MAR-2025 ?CONTINUED USE OF MEDICINAL PRODUCT
     Dates: start: 20250103, end: 20250110
  10. Behepan [Concomitant]
     Indication: Vitamin B complex deficiency
     Dosage: STRENGTH: 1 MG, PAUSED FROM 10-JAN-25 TO 10-MAR-2025 ?CONTINUED USE OF MEDICINAL PRODUCT
     Dates: start: 20240310

REACTIONS (3)
  - Hepatitis toxic [Recovered/Resolved]
  - Malaise [Recovered/Resolved]
  - Fatigue [Recovered/Resolved]

NARRATIVE: CASE EVENT DATE: 20241204
